FAERS Safety Report 26059819 (Version 1)
Quarter: 2025Q4

REPORT INFORMATION
  Report Type: Spontaneous
  Country: CN (occurrence: CN)
  Receive Date: 20251118
  Receipt Date: 20251118
  Transmission Date: 20260118
  Serious: Yes (Hospitalization)
  Sender: PFIZER
  Company Number: CN-PFIZER INC-PV202500134033

PATIENT
  Age: 68 Year
  Sex: Male
  Weight: 67.1 kg

DRUGS (4)
  1. CYTARABINE [Suspect]
     Active Substance: CYTARABINE
     Indication: Lymphoma
     Dosage: 2000.000 MG, 2X/DAY
     Route: 041
     Dates: start: 20251016, end: 20251017
  2. CISPLATIN [Suspect]
     Active Substance: CISPLATIN
     Indication: Lymphoma
     Dosage: 40.000 MG, 1X/DAY
     Route: 041
     Dates: start: 20251016, end: 20251018
  3. SODIUM CHLORIDE [Concomitant]
     Active Substance: SODIUM CHLORIDE
     Indication: Lymphoma
     Dosage: 250.000 ML, 2X/DAY
     Route: 041
     Dates: start: 20251016, end: 20251017
  4. SODIUM CHLORIDE [Concomitant]
     Active Substance: SODIUM CHLORIDE
     Indication: Lymphoma
     Dosage: 500.000 ML, 1X/DAY
     Route: 041
     Dates: start: 20251016, end: 20251018

REACTIONS (9)
  - Platelet count decreased [Recovering/Resolving]
  - White blood cell count decreased [Recovering/Resolving]
  - Myelosuppression [Recovering/Resolving]
  - Asthenia [Recovering/Resolving]
  - Pyrexia [Recovering/Resolving]
  - Temperature intolerance [Recovering/Resolving]
  - Fall [Recovering/Resolving]
  - Buttock injury [Recovering/Resolving]
  - Off label use [Unknown]

NARRATIVE: CASE EVENT DATE: 20251001
